FAERS Safety Report 6944466-1 (Version None)
Quarter: 2010Q3

REPORT INFORMATION
  Report Type: 
  Country: None (occurrence: None)
  Receive Date: 20100827
  Receipt Date: 20100820
  Transmission Date: 20110219
  Serious: Yes (Other)
  Sender: FDA-Public Use
  Company Number: GR-PFIZER INC-2010105070

PATIENT
  Sex: Female

DRUGS (3)
  1. MEDROL [Suspect]
     Dosage: (1.5 TABLET OF 16 MG), PER DAY
     Route: 048
  2. MEDROL [Suspect]
     Dosage: (1 TABLET OF 16 MG), PER DAY
     Route: 048
  3. MEDROL [Suspect]
     Dosage: (HALF A TABLET OF 16 MG), PER DAY
     Route: 048
     Dates: start: 20100819

REACTIONS (2)
  - HYPERHIDROSIS [None]
  - HYPOTENSION [None]
